FAERS Safety Report 5079156-6 (Version None)
Quarter: 2006Q3

REPORT INFORMATION
  Report Type: 
  Country: None (occurrence: None)
  Receive Date: 20060814
  Receipt Date: 20060810
  Transmission Date: 20061208
  Serious: Yes (Hospitalization)
  Sender: FDA-Public Use
  Company Number: US-GLAXOSMITHKLINE-A0616148A

PATIENT
  Sex: Male

DRUGS (9)
  1. COREG [Suspect]
     Dosage: 12.5MG TWICE PER DAY
     Route: 048
     Dates: start: 19981201
  2. LOTENSIN [Suspect]
     Route: 048
  3. DIGOXIN [Concomitant]
  4. FUROSEMIDE [Concomitant]
  5. ASPIRIN [Concomitant]
  6. NIASPAN [Concomitant]
  7. SYNTHROID [Concomitant]
  8. SPIRONOLACTONE [Concomitant]
  9. UROCIT-K [Concomitant]

REACTIONS (6)
  - BLOOD PRESSURE DECREASED [None]
  - BREAST PAIN [None]
  - DRUG INEFFECTIVE [None]
  - DRUG INTERACTION [None]
  - DYSPNOEA [None]
  - WHEEZING [None]
